FAERS Safety Report 9272510 (Version 7)
Quarter: 2015Q1

REPORT INFORMATION
  Report Type: Spontaneous
  Country: US (occurrence: US)
  Receive Date: 20130506
  Receipt Date: 20150128
  Transmission Date: 20150721
  Serious: Yes (Hospitalization, Disabling, Other)
  Sender: FDA-Public Use
  Company Number: US-009507513-1305USA000784

PATIENT
  Sex: Male
  Weight: 73.3 kg

DRUGS (2)
  1. PROPECIA [Suspect]
     Active Substance: FINASTERIDE
     Indication: ANDROGENETIC ALOPECIA
     Dosage: 1 MG, UNK
     Route: 048
     Dates: start: 1999, end: 20021004
  2. PROPECIA [Suspect]
     Active Substance: FINASTERIDE
     Dosage: 1 MG, UNK
     Route: 048
     Dates: start: 20040330, end: 2011

REACTIONS (46)
  - Agitation [Unknown]
  - Limb operation [Unknown]
  - Urethral stenosis [Unknown]
  - Micturition urgency [Unknown]
  - Renal injury [Unknown]
  - Physical assault [Unknown]
  - Disturbance in attention [Unknown]
  - Dysuria [Unknown]
  - Depression [Unknown]
  - Anxiety [Unknown]
  - Keratomileusis [Unknown]
  - Urethral dilation procedure [Unknown]
  - Prostatitis [Unknown]
  - Urethral stenosis [Unknown]
  - Dry eye [Unknown]
  - Laceration [Unknown]
  - Asthenia [Unknown]
  - Pelvic pain [Unknown]
  - Deafness [Unknown]
  - Sexual dysfunction [Not Recovered/Not Resolved]
  - Generalised anxiety disorder [Unknown]
  - Dizziness [Unknown]
  - Amnesia [Unknown]
  - Urinary retention [Unknown]
  - Urinary tract infection [Unknown]
  - Drug ineffective [Unknown]
  - Lower urinary tract symptoms [Unknown]
  - Dysuria [Unknown]
  - Infectious mononucleosis [Unknown]
  - Erectile dysfunction [Not Recovered/Not Resolved]
  - Palpitations [Unknown]
  - Bradycardia [Unknown]
  - Libido decreased [Unknown]
  - Fatigue [Unknown]
  - Pollakiuria [Not Recovered/Not Resolved]
  - Tenderness [Unknown]
  - Injury [Unknown]
  - Genital disorder male [Unknown]
  - Cognitive disorder [Unknown]
  - Urinary tract disorder [Unknown]
  - Hair transplant [Unknown]
  - Loss of consciousness [Unknown]
  - Nasal septal operation [Unknown]
  - Constipation [Unknown]
  - Urinary hesitation [Unknown]
  - Nocturia [Unknown]

NARRATIVE: CASE EVENT DATE: 2001
